FAERS Safety Report 16673522 (Version 1)
Quarter: 2019Q3

REPORT INFORMATION
  Report Type: Report from Study
  Country: IT (occurrence: IT)
  Receive Date: 20190806
  Receipt Date: 20190806
  Transmission Date: 20191004
  Serious: Yes (Hospitalization)
  Sender: FDA-Public Use
  Company Number: IT-DSJP-DSE-2019-130287

PATIENT

DRUGS (5)
  1. PLAUNAZIDE [Suspect]
     Active Substance: HYDROCHLOROTHIAZIDE\OLMESARTAN MEDOXOMIL
     Indication: HYPERTENSION
     Dosage: 20/25 MG, QD
     Route: 048
     Dates: start: 20160401, end: 20190617
  2. DIBASE [Concomitant]
     Active Substance: CHOLECALCIFEROL
     Indication: PRODUCT USED FOR UNKNOWN INDICATION
     Dosage: UNK
     Route: 048
  3. EUTIROX [Concomitant]
     Active Substance: LEVOTHYROXINE SODIUM
     Indication: PRODUCT USED FOR UNKNOWN INDICATION
     Dosage: UNK
  4. COLCHICINE. [Suspect]
     Active Substance: COLCHICINE
     Indication: ARTHROPATHY
     Dosage: 1 MG, QD
     Route: 048
     Dates: start: 20160721, end: 20190617
  5. ALENDROS [Concomitant]
     Active Substance: ALENDRONATE SODIUM
     Indication: PRODUCT USED FOR UNKNOWN INDICATION
     Dosage: UNK

REACTIONS (6)
  - Dehydration [Recovering/Resolving]
  - Confusional state [Recovering/Resolving]
  - Drug intolerance [Recovered/Resolved]
  - Pyrexia [Unknown]
  - Hyponatraemia [Recovering/Resolving]
  - Diarrhoea [Recovering/Resolving]

NARRATIVE: CASE EVENT DATE: 20190617
